FAERS Safety Report 4817138-7 (Version None)
Quarter: 2005Q4

REPORT INFORMATION
  Report Type: 
  Country: None (occurrence: None)
  Receive Date: 20051101
  Receipt Date: 20051021
  Transmission Date: 20060501
  Serious: Yes (Hospitalization)
  Sender: FDA-Public Use
  Company Number: JP-ROCHE-422430

PATIENT
  Age: 72 Year
  Sex: Male

DRUGS (2)
  1. PEGASYS [Suspect]
     Indication: HEPATITIS C
     Dosage: STOP DATE REPORTED AS 2005.
     Route: 058
     Dates: start: 20050920
  2. PEGASYS [Suspect]
     Route: 058
     Dates: start: 20050615, end: 20051019

REACTIONS (1)
  - PNEUMONIA ASPIRATION [None]
